FAERS Safety Report 5564977-3 (Version None)
Quarter: 2007Q4

REPORT INFORMATION
  Report Type: 
  Country: None (occurrence: None)
  Receive Date: 20071218
  Receipt Date: 20071207
  Transmission Date: 20080405
  Serious: Yes (Life-Threatening, Hospitalization)
  Sender: FDA-Public Use
  Company Number: B0500043A

PATIENT
  Age: 35 Year
  Sex: Male

DRUGS (7)
  1. ARTIST [Suspect]
     Indication: SELF MUTILATION
     Dosage: 320MG PER DAY
     Route: 048
     Dates: start: 20070818, end: 20070818
  2. ALLOPURINOL [Suspect]
     Indication: SELF MUTILATION
     Dosage: 3200MG PER DAY
     Route: 048
     Dates: start: 20070818, end: 20070818
  3. OLMETEC [Suspect]
     Indication: SELF MUTILATION
     Dosage: 1480MG PER DAY
     Route: 048
     Dates: start: 20070818, end: 20070818
  4. ADALAT [Suspect]
     Indication: SELF MUTILATION
     Dosage: 1920MG PER DAY
     Route: 048
     Dates: start: 20070818, end: 20070818
  5. DIOVAN [Suspect]
     Indication: SELF MUTILATION
     Dosage: 320MG PER DAY
     Route: 048
     Dates: start: 20070818, end: 20070818
  6. BEER [Concomitant]
     Dosage: 1000ML PER DAY
     Dates: start: 20070818
  7. SPIRITS [Concomitant]
     Dosage: 500ML PER DAY
     Dates: start: 20070818

REACTIONS (9)
  - BLOOD ALKALINE PHOSPHATASE DECREASED [None]
  - BLOOD LACTATE DEHYDROGENASE [None]
  - FIBRIN INCREASED [None]
  - OVERDOSE [None]
  - PARALYSIS [None]
  - SHOCK [None]
  - SUICIDE ATTEMPT [None]
  - VOMITING [None]
  - WHITE BLOOD CELL COUNT INCREASED [None]
